FAERS Safety Report 9517597 (Version 2)
Quarter: 2013Q4

REPORT INFORMATION
  Report Type: Spontaneous
  Country: US (occurrence: US)
  Receive Date: 20130912
  Receipt Date: 20131011
  Transmission Date: 20140711
  Serious: No
  Sender: FDA-Public Use
  Company Number: US-B.I. PHARMACEUTICALS,INC./RIDGEFIELD-2013-BI-27111BP

PATIENT
  Age: 85 Year
  Sex: Male
  Weight: 67 kg

DRUGS (11)
  1. AGGRENOX [Suspect]
     Indication: CEREBROVASCULAR ACCIDENT PROPHYLAXIS
     Dosage: DOSE PER APPLICATION: 25 MG / 200 MG; DAILY DOSE: 50 MG/ 400 MG
     Route: 048
     Dates: start: 201301
  2. SIMVASTATIN [Concomitant]
     Route: 048
  3. RAMIPRIL [Concomitant]
     Dosage: 10 MG
     Route: 048
  4. CARVEDILOL [Concomitant]
     Route: 048
  5. MIRAPEX [Concomitant]
     Indication: RESTLESS LEGS SYNDROME
     Route: 048
  6. KLONOPIN [Concomitant]
     Dosage: 10 MG
     Route: 048
  7. NEURONTIN [Concomitant]
     Dosage: 300 MG
     Route: 048
  8. TIMOLOL [Concomitant]
     Dosage: 10 MG
     Route: 048
  9. NIASPAN [Concomitant]
     Dosage: 2000 MG
     Route: 048
  10. ARICEPT [Concomitant]
     Dosage: 10 MG
     Route: 048
  11. AGGRENOX [Concomitant]
     Dosage: 50 MG
     Route: 048

REACTIONS (5)
  - Oropharyngeal pain [Not Recovered/Not Resolved]
  - Haemoptysis [Recovered/Resolved]
  - Productive cough [Recovered/Resolved]
  - Foreign body [Recovered/Resolved]
  - Dysphonia [Not Recovered/Not Resolved]
